FAERS Safety Report 25252304 (Version 1)
Quarter: 2025Q2

REPORT INFORMATION
  Report Type: Spontaneous
  Country: US (occurrence: US)
  Receive Date: 20250429
  Receipt Date: 20250429
  Transmission Date: 20250717
  Serious: No
  Sender: COVIS PHARMA GMBH
  Company Number: US-AMAGP-2025COV00451

PATIENT
  Sex: Female

DRUGS (1)
  1. ALVESCO [Suspect]
     Active Substance: CICLESONIDE
     Indication: Product used for unknown indication
     Route: 055

REACTIONS (3)
  - Product dose omission issue [Unknown]
  - Off label use [Unknown]
  - Cough [Unknown]
